FAERS Safety Report 15883556 (Version 1)
Quarter: 2019Q1

REPORT INFORMATION
  Report Type: Spontaneous
  Country: CN (occurrence: CN)
  Receive Date: 20190129
  Receipt Date: 20190129
  Transmission Date: 20190417
  Serious: Yes (Other)
  Sender: FDA-Public Use
  Company Number: CN-ROCHE-2251742

PATIENT
  Age: 54 Year
  Sex: Male

DRUGS (22)
  1. MABTHERA [Suspect]
     Active Substance: RITUXIMAB
     Dosage: ON DAY 0
     Route: 065
     Dates: start: 20161120, end: 20170310
  2. ETOPOSIDE. [Concomitant]
     Active Substance: ETOPOSIDE
     Dosage: FROM DAY 3 TO DAY 6
     Route: 065
     Dates: start: 20170503
  3. MABTHERA [Suspect]
     Active Substance: RITUXIMAB
     Indication: B-CELL LYMPHOMA
     Dosage: ON DAY 0
     Route: 065
     Dates: start: 20161028
  4. VINDESINE [Concomitant]
     Active Substance: VINDESINE
     Dosage: FROM DAY 1 TO DAY 4
     Route: 065
     Dates: start: 20161028
  5. DEXAMETHASONE. [Concomitant]
     Active Substance: DEXAMETHASONE
     Dosage: FROM DAY 1 TO DAY 5
     Route: 065
     Dates: start: 20161028
  6. DEXAMETHASONE. [Concomitant]
     Active Substance: DEXAMETHASONE
     Dosage: FROM DAY 1 TO DAY 5
     Route: 065
     Dates: start: 20161120, end: 20170310
  7. DEXAMETHASONE. [Concomitant]
     Active Substance: DEXAMETHASONE
     Dosage: FOR 4 TIMES
     Route: 037
  8. CYCLOPHOSPHAMIDE. [Concomitant]
     Active Substance: CYCLOPHOSPHAMIDE
     Dosage: ON DAY 5
     Route: 065
     Dates: start: 20161120, end: 20170310
  9. CARMUSTINE. [Concomitant]
     Active Substance: CARMUSTINE
     Dosage: ON DAY 7
     Route: 065
     Dates: start: 20170503
  10. ETOPOSIDE. [Concomitant]
     Active Substance: ETOPOSIDE
     Dosage: FROM DAY 1 TO DAY 4
     Route: 065
     Dates: start: 20161120, end: 20170310
  11. DEXAMETHASONE. [Concomitant]
     Active Substance: DEXAMETHASONE
     Dosage: FROM DAY 1 TO DAY 4
     Route: 065
     Dates: start: 20171128
  12. CYCLOPHOSPHAMIDE. [Concomitant]
     Active Substance: CYCLOPHOSPHAMIDE
     Dosage: ON DAY 5
     Route: 065
     Dates: start: 20161028
  13. EPIRUBICIN [Concomitant]
     Active Substance: EPIRUBICIN
     Dosage: FROM DAY 1 TO DAY 4
     Route: 065
     Dates: start: 20161028
  14. CYTARABINE. [Concomitant]
     Active Substance: CYTARABINE
     Dosage: FROM DAY 3 TO DAY 6
     Route: 065
     Dates: start: 20170503
  15. ETOPOSIDE. [Concomitant]
     Active Substance: ETOPOSIDE
     Dosage: FROM DAY 1 TO DAY 4
     Route: 065
     Dates: start: 20161028
  16. VINDESINE [Concomitant]
     Active Substance: VINDESINE
     Dosage: FROM DAY 1 TO DAY 4
     Route: 065
     Dates: start: 20161120, end: 20170310
  17. GEMCITABINE [Concomitant]
     Active Substance: GEMCITABINE\GEMCITABINE HYDROCHLORIDE
     Dosage: ON DAY 1 AND DAY 8
     Route: 065
     Dates: start: 20171128
  18. CISPLATIN. [Concomitant]
     Active Substance: CISPLATIN
     Dosage: FROM DAY 1 TO DAY 3
     Route: 065
     Dates: start: 20171128
  19. METHOTREXATE. [Concomitant]
     Active Substance: METHOTREXATE
     Dosage: FOR 4 TIMES
     Route: 037
  20. MELPHALAN. [Concomitant]
     Active Substance: MELPHALAN
     Dosage: ON DAY 2
     Route: 065
     Dates: start: 20170503
  21. EPIRUBICIN [Concomitant]
     Active Substance: EPIRUBICIN
     Dosage: FROM DAY 1 TO DAY 4
     Route: 065
     Dates: start: 20161120, end: 20170310
  22. CYTARABINE. [Concomitant]
     Active Substance: CYTARABINE
     Dosage: FOR 4 TIMES
     Route: 037

REACTIONS (5)
  - Cerebral atrophy [Unknown]
  - Bone marrow failure [Unknown]
  - Chronic gastritis [Unknown]
  - Pulmonary mass [Unknown]
  - Malformation venous [Unknown]

NARRATIVE: CASE EVENT DATE: 2017
